FAERS Safety Report 17286556 (Version 1)
Quarter: 2020Q1

REPORT INFORMATION
  Report Type: Spontaneous
  Country: US (occurrence: US)
  Receive Date: 20191230
  Receipt Date: 20191230
  Transmission Date: 20200409
  Serious: No
  Sender: FDA-Public Use
  Company Number: None

PATIENT
  Sex: Female

DRUGS (20)
  1. METOPROL TAR [Concomitant]
  2. PREDNISONE. [Concomitant]
     Active Substance: PREDNISONE
  3. CETIRIZINE [Concomitant]
     Active Substance: CETIRIZINE HYDROCHLORIDE
  4. LEVEMIR [Concomitant]
     Active Substance: INSULIN DETEMIR
  5. URSODIOL. [Concomitant]
     Active Substance: URSODIOL
  6. ALPRAZOLAM. [Concomitant]
     Active Substance: ALPRAZOLAM
  7. FLUTICASONE. [Concomitant]
     Active Substance: FLUTICASONE
  8. HUMALOG KWIK INJ [Concomitant]
  9. TOPIRAMATE. [Concomitant]
     Active Substance: TOPIRAMATE
  10. LUMIGAN [Concomitant]
     Active Substance: BIMATOPROST
  11. OMPRAZOLE [Concomitant]
     Active Substance: OMEPRAZOLE
  12. OCALIVA [Suspect]
     Active Substance: OBETICHOLIC ACID
     Indication: PRIMARY BILIARY CHOLANGITIS
     Route: 048
     Dates: start: 20190607
  13. RESTASIS [Concomitant]
     Active Substance: CYCLOSPORINE
  14. HYDROCHLOROT [Concomitant]
     Active Substance: HYDROCHLOROTHIAZIDE
  15. ATORVASTATIN [Concomitant]
     Active Substance: ATORVASTATIN
  16. AMLOD/OLMESA [Concomitant]
  17. HYDRALAZINE [Concomitant]
     Active Substance: HYDRALAZINE HYDROCHLORIDE
  18. GABAPENTIN. [Concomitant]
     Active Substance: GABAPENTIN
  19. MOMETASONE [Concomitant]
     Active Substance: MOMETASONE
  20. PRIMIDONE. [Concomitant]
     Active Substance: PRIMIDONE

REACTIONS (1)
  - Pruritus [None]
